FAERS Safety Report 11976376 (Version 1)
Quarter: 2016Q1

REPORT INFORMATION
  Report Type: Spontaneous
  Country: US (occurrence: US)
  Receive Date: 20160129
  Receipt Date: 20160129
  Transmission Date: 20160526
  Serious: Yes (Other)
  Sender: FDA-Public Use
  Company Number: US-NOVEN PHARMACEUTICALS, INC.-US2016000098

PATIENT

DRUGS (2)
  1. DAYTRANA [Suspect]
     Active Substance: METHYLPHENIDATE
     Dosage: USING TWO 10MG PATCHES TOGETHER
     Route: 062
  2. DAYTRANA [Suspect]
     Active Substance: METHYLPHENIDATE
     Indication: ATTENTION DEFICIT/HYPERACTIVITY DISORDER
     Dosage: 20 MG, UNKNOWN
     Route: 062
     Dates: start: 2015

REACTIONS (10)
  - Cold sweat [Unknown]
  - Wrong technique in product usage process [Unknown]
  - Respiratory disorder [Recovered/Resolved]
  - Panic attack [Unknown]
  - Off label use [Unknown]
  - Respiratory distress [Unknown]
  - Drug dose omission [Unknown]
  - Generalised oedema [Unknown]
  - Weight increased [Unknown]
  - Pallor [Unknown]
